FAERS Safety Report 4587023-7 (Version None)
Quarter: 2005Q1

REPORT INFORMATION
  Report Type: 
  Country: None (occurrence: None)
  Receive Date: 20050218
  Receipt Date: 20050209
  Transmission Date: 20050727
  Serious: Yes (Death, Hospitalization)
  Sender: FDA-Public Use
  Company Number: ES-BRISTOL-MYERS SQUIBB COMPANY-12857090

PATIENT
  Age: 43 Year
  Sex: Female
  Weight: 82 kg

DRUGS (10)
  1. CISPLATIN [Suspect]
     Indication: GLIOBLASTOMA MULTIFORME
     Route: 042
     Dates: start: 20010906, end: 20011105
  2. TEMOZOLOMIDE [Suspect]
     Indication: GLIOBLASTOMA MULTIFORME
     Route: 048
     Dates: start: 20010906, end: 20011109
  3. DECADRON [Concomitant]
     Route: 048
     Dates: start: 20010830
  4. LAMICTAL [Concomitant]
     Route: 048
     Dates: start: 20010830
  5. LEVOTHROID [Concomitant]
     Route: 048
     Dates: start: 20010830
  6. ONDANSETRON [Concomitant]
     Route: 042
     Dates: start: 20010906, end: 20010910
  7. METOCLOPRAMIDE [Concomitant]
     Route: 048
     Dates: start: 20010906, end: 20010910
  8. ZOFRAN [Concomitant]
     Dates: start: 20011105, end: 20011106
  9. PRIMPERAN TAB [Concomitant]
     Dates: start: 20011107, end: 20011108
  10. RADIATION THERAPY [Concomitant]
     Indication: GLIOBLASTOMA MULTIFORME

REACTIONS (4)
  - BRAIN OEDEMA [None]
  - DEPRESSED LEVEL OF CONSCIOUSNESS [None]
  - GLIOBLASTOMA MULTIFORME [None]
  - MALIGNANT NEOPLASM PROGRESSION [None]
